FAERS Safety Report 17060755 (Version 1)
Quarter: 2019Q4

REPORT INFORMATION
  Report Type: Spontaneous
  Country: GR (occurrence: GR)
  Receive Date: 20191121
  Receipt Date: 20191121
  Transmission Date: 20200122
  Serious: Yes (Hospitalization, Other)
  Sender: FDA-Public Use
  Company Number: GR-AMGEN-GRCSP2019190990

PATIENT
  Age: 48 Year
  Sex: Female

DRUGS (5)
  1. HOLOXAN [Suspect]
     Active Substance: IFOSFAMIDE
     Indication: SARCOMA METASTATIC
     Dosage: 3000 MILLIGRAM/SQ. METER, Q3WK, ON D1-D3
     Route: 042
  2. FILGRASTIM [Suspect]
     Active Substance: FILGRASTIM
     Indication: SARCOMA METASTATIC
     Dosage: 48 INTERNATIONAL UNIT, D5-D12
     Route: 058
  3. TRABECTEDIN [Concomitant]
     Active Substance: TRABECTEDIN
     Indication: SARCOMA
  4. DOXIL [Suspect]
     Active Substance: DOXORUBICIN HYDROCHLORIDE
     Indication: SARCOMA METASTATIC
     Dosage: 25 MICROGRAM/SQ. METER, ON D1
     Route: 042
  5. UROMITEXAN [Suspect]
     Active Substance: MESNA
     Indication: SARCOMA METASTATIC
     Dosage: 3000 MILLIGRAM/SQ. METER, ON D1- D4
     Route: 042

REACTIONS (9)
  - Disease progression [Unknown]
  - Chronic kidney disease [Unknown]
  - Pseudomonas infection [Unknown]
  - Febrile neutropenia [Unknown]
  - Adverse event [Unknown]
  - Anaemia [Unknown]
  - Thrombocytopenia [Unknown]
  - Pyelonephritis [Unknown]
  - Pulmonary mass [Unknown]
